FAERS Safety Report 13276613 (Version 2)
Quarter: 2017Q1

REPORT INFORMATION
  Report Type: Spontaneous
  Country: JP (occurrence: JP)
  Receive Date: 20170228
  Receipt Date: 20170310
  Transmission Date: 20170428
  Serious: Yes (Death, Hospitalization, Other)
  Sender: FDA-Public Use
  Company Number: JP-APOTEX-2017AP007414

PATIENT
  Age: 73 Year
  Sex: Female

DRUGS (7)
  1. PAXIL [Suspect]
     Active Substance: PAROXETINE HYDROCHLORIDE
     Dosage: 35 MG, 1D
     Route: 048
  2. PAXIL [Suspect]
     Active Substance: PAROXETINE HYDROCHLORIDE
     Dosage: 15 MG, 1D
     Route: 048
     Dates: start: 20161215
  3. PAXIL [Suspect]
     Active Substance: PAROXETINE HYDROCHLORIDE
     Dosage: 40 MG, 1D
     Route: 048
  4. LEXOTAN [Concomitant]
     Active Substance: BROMAZEPAM
     Indication: PRODUCT USED FOR UNKNOWN INDICATION
     Dosage: 24 MG, 1D
     Route: 065
  5. ARICEPT [Concomitant]
     Active Substance: DONEPEZIL HYDROCHLORIDE
     Indication: PRODUCT USED FOR UNKNOWN INDICATION
     Dosage: UNK
     Route: 065
  6. PAXIL [Suspect]
     Active Substance: PAROXETINE HYDROCHLORIDE
     Indication: PRODUCT USED FOR UNKNOWN INDICATION
     Dosage: 20 MG, 1D
     Route: 048
     Dates: start: 20170215
  7. ROHYPNOL [Concomitant]
     Active Substance: FLUNITRAZEPAM
     Indication: PRODUCT USED FOR UNKNOWN INDICATION
     Dosage: UNK
     Route: 065

REACTIONS (10)
  - Bradyphrenia [Unknown]
  - Tremor [Unknown]
  - Death [Fatal]
  - Sense of oppression [Unknown]
  - Asthenia [Unknown]
  - Withdrawal syndrome [Unknown]
  - Mental impairment [Unknown]
  - Malaise [Unknown]
  - Restlessness [Unknown]
  - Insomnia [Unknown]

NARRATIVE: CASE EVENT DATE: 20161214
